FAERS Safety Report 11747127 (Version 4)
Quarter: 2018Q4

REPORT INFORMATION
  Report Type: Spontaneous
  Country: GB (occurrence: GB)
  Receive Date: 20151117
  Receipt Date: 20181009
  Transmission Date: 20190204
  Serious: Yes (Other)
  Sender: FDA-Public Use
  Company Number: GB-TEVA-607459ACC

PATIENT
  Age: 52 Year
  Sex: Female
  Weight: 65 kg

DRUGS (10)
  1. LENALIDOMIDE [Suspect]
     Active Substance: LENALIDOMIDE
     Indication: PLASMA CELL MYELOMA
     Dosage: DOSAGE FORM: UNSPECIFIED
     Route: 058
     Dates: start: 201201, end: 201304
  2. POMALIDOMIDE [Suspect]
     Active Substance: POMALIDOMIDE
     Indication: PLASMA CELL MYELOMA
     Route: 065
     Dates: start: 201402, end: 201503
  3. CARFILZOMIB [Suspect]
     Active Substance: CARFILZOMIB
     Indication: PLASMA CELL MYELOMA
     Route: 016
  4. DEXAMETHASONE. [Suspect]
     Active Substance: DEXAMETHASONE
     Indication: PLASMA CELL MYELOMA
     Route: 058
     Dates: start: 2009
  5. VELCADE [Suspect]
     Active Substance: BORTEZOMIB
     Dosage: DOSAGE FORM: LYOPHILIZED POWDER
     Route: 058
  6. CYCLOPHOSPHAMIDE. [Suspect]
     Active Substance: CYCLOPHOSPHAMIDE
     Indication: PLASMA CELL MYELOMA
     Route: 058
  7. CISPLATIN. [Suspect]
     Active Substance: CISPLATIN
     Indication: PLASMA CELL MYELOMA
     Dosage: DOSAGE FORM: UNKNOWN
     Route: 058
  8. VELCADE [Suspect]
     Active Substance: BORTEZOMIB
     Indication: PLASMA CELL MYELOMA
     Dosage: DOSAGE FORM: LYOPHILIZED POWDER
     Route: 058
     Dates: start: 201005, end: 201205
  9. DOXORUBICIN [Suspect]
     Active Substance: DOXORUBICIN
     Indication: PLASMA CELL MYELOMA
     Route: 058
  10. MELPHALAN. [Suspect]
     Active Substance: MELPHALAN
     Indication: PLASMA CELL MYELOMA
     Dosage: DOSAGE FORM: UNKNOWN
     Route: 058

REACTIONS (3)
  - Plasma cell myeloma [Unknown]
  - Malignant neoplasm progression [Unknown]
  - Product use in unapproved indication [Unknown]

NARRATIVE: CASE EVENT DATE: 201502
